FAERS Safety Report 5042360-7 (Version None)
Quarter: 2006Q2

REPORT INFORMATION
  Report Type: 
  Country: None (occurrence: None)
  Receive Date: 20060627
  Receipt Date: 20060615
  Transmission Date: 20061013
  Serious: Yes (Hospitalization, Other)
  Sender: FDA-Public Use
  Company Number: HQWYE249416JUN06

PATIENT
  Age: 69 Year
  Sex: Male

DRUGS (4)
  1. TYGACIL [Suspect]
     Indication: ACINETOBACTER BACTERAEMIA
     Dosage: 50 MG 1X PER 12 HR INTRAVENOUS
     Route: 042
     Dates: start: 20060525, end: 20060604
  2. TYGACIL [Suspect]
     Indication: BACTERAEMIA
     Dosage: 50 MG 1X PER 12 HR INTRAVENOUS
     Route: 042
     Dates: start: 20060525, end: 20060604
  3. TYGACIL [Suspect]
     Indication: STAPHYLOCOCCAL INFECTION
     Dosage: 50 MG 1X PER 12 HR INTRAVENOUS
     Route: 042
     Dates: start: 20060525, end: 20060604
  4. CANCIDAS [Concomitant]

REACTIONS (3)
  - CELLULITIS [None]
  - DIARRHOEA [None]
  - DRUG INEFFECTIVE [None]
